FAERS Safety Report 5163301-8 (Version None)
Quarter: 2006Q4

REPORT INFORMATION
  Report Type: 
  Country: None (occurrence: None)
  Receive Date: 20061204
  Receipt Date: 20061121
  Transmission Date: 20070319
  Serious: Yes (Hospitalization)
  Sender: FDA-Public Use
  Company Number: CN-JNJFOC-20061105465

PATIENT
  Age: 2 Year
  Sex: Female

DRUGS (6)
  1. ACETAMINOPHEN [Suspect]
  2. ACETAMINOPHEN [Suspect]
     Indication: UPPER RESPIRATORY TRACT INFECTION
  3. HYDROXYACETAMIDE [Suspect]
     Indication: UPPER RESPIRATORY TRACT INFECTION
  4. DOMPERIDONE [Suspect]
     Indication: UPPER RESPIRATORY TRACT INFECTION
  5. XYLYXANTHRAMIC [Suspect]
     Indication: UPPER RESPIRATORY TRACT INFECTION
  6. AMOXIL [Concomitant]
     Indication: UPPER RESPIRATORY TRACT INFECTION

REACTIONS (4)
  - CONVULSION [None]
  - HEPATIC FAILURE [None]
  - HYPOGLYCAEMIA [None]
  - OVERDOSE [None]
